FAERS Safety Report 7477557-X (Version None)
Quarter: 2011Q2

REPORT INFORMATION
  Report Type: 
  Country: None (occurrence: None)
  Receive Date: 20110513
  Receipt Date: 20110502
  Transmission Date: 20111010
  Serious: Yes (Other)
  Sender: FDA-Public Use
  Company Number: AU-RANBAXY-2011RR-43298

PATIENT
  Age: 46 Year
  Sex: Male

DRUGS (3)
  1. SEROQUEL [Suspect]
     Indication: AGITATION
     Dosage: 50 MG, SINGLE
  2. IRBESARTAN/HYDROCHLOROTHIAZIDE [Suspect]
     Indication: HYPERTENSION
     Dosage: 300/12.5 MG/DAY
  3. ESCITALOPRAM [Concomitant]
     Dosage: 10 MG, UNK

REACTIONS (2)
  - DRUG INTERACTION [None]
  - HYPOTENSION [None]
